FAERS Safety Report 7646699-8 (Version None)
Quarter: 2011Q3

REPORT INFORMATION
  Report Type: 
  Country: None (occurrence: None)
  Receive Date: 20110729
  Receipt Date: 20110729
  Transmission Date: 20111222
  Serious: No
  Sender: FDA-Public Use
  Company Number: None

PATIENT
  Sex: Female
  Weight: 56.6996 kg

DRUGS (2)
  1. PREDNISONE [Suspect]
  2. CETIRIZINE HCL [Suspect]

REACTIONS (3)
  - PRURITUS [None]
  - GINGIVAL PAIN [None]
  - URTICARIA [None]
